FAERS Safety Report 18202859 (Version 1)
Quarter: 2020Q3

REPORT INFORMATION
  Report Type: Spontaneous
  Country: US (occurrence: US)
  Receive Date: 20200827
  Receipt Date: 20200827
  Transmission Date: 20201103
  Serious: No
  Sender: FDA-Public Use
  Company Number: US-LUPIN PHARMACEUTICALS INC.-2019-08033

PATIENT
  Age: 62 Year
  Sex: Female

DRUGS (2)
  1. AMLODIPINE BESYLATE TABLETS USP, 5 MG [Suspect]
     Active Substance: AMLODIPINE BESYLATE
     Dosage: UNK (NEW SMALLER TABLETS)
     Route: 065
     Dates: start: 20191119
  2. AMLODIPINE BESYLATE TABLETS USP, 5 MG [Suspect]
     Active Substance: AMLODIPINE BESYLATE
     Indication: BLOOD PRESSURE ABNORMAL
     Dosage: UNK (OLD BIGGER TABLETS)
     Route: 065
     Dates: start: 201801, end: 20191119

REACTIONS (3)
  - Blood pressure decreased [Unknown]
  - Therapeutic product effect increased [Unknown]
  - Product quality issue [Unknown]

NARRATIVE: CASE EVENT DATE: 20191120
